APPROVED DRUG PRODUCT: FENTANYL-37
Active Ingredient: FENTANYL
Strength: 37.5MCG/HR
Dosage Form/Route: FILM, EXTENDED RELEASE;TRANSDERMAL
Application: A077154 | Product #006 | TE Code: AB
Applicant: SPECGX LLC
Approved: Jan 14, 2020 | RLD: No | RS: No | Type: RX